FAERS Safety Report 12722047 (Version 2)
Quarter: 2016Q4

REPORT INFORMATION
  Report Type: Spontaneous
  Country: SE (occurrence: SE)
  Receive Date: 20160907
  Receipt Date: 20161021
  Transmission Date: 20170207
  Serious: Yes (Hospitalization, Other)
  Sender: FDA-Public Use
  Company Number: SE-ELI_LILLY_AND_COMPANY-SE201608014371

PATIENT
  Sex: Male

DRUGS (3)
  1. ZYPADHERA [Suspect]
     Active Substance: OLANZAPINE PAMOATE
     Indication: PRODUCT USED FOR UNKNOWN INDICATION
     Dosage: UNK, UNKNOWN
     Route: 065
  2. VISKEN [Concomitant]
     Active Substance: PINDOLOL
     Indication: BLOOD PRESSURE MEASUREMENT
  3. ERGENYL RETARD                     /00228502/ [Concomitant]

REACTIONS (6)
  - Fatigue [Recovered/Resolved]
  - Balance disorder [Recovered/Resolved]
  - Dysarthria [Recovered/Resolved]
  - Pneumonia [Recovered/Resolved]
  - Motor dysfunction [Recovered/Resolved]
  - Confusional state [Recovered/Resolved]
